FAERS Safety Report 5955868-4 (Version None)
Quarter: 2008Q4

REPORT INFORMATION
  Report Type: 
  Country: None (occurrence: None)
  Receive Date: 20081112
  Receipt Date: 20081103
  Transmission Date: 20090506
  Serious: Yes (Hospitalization)
  Sender: FDA-Public Use
  Company Number: 2008SP022262

PATIENT
  Age: 43 Year
  Sex: Male
  Weight: 83.4 kg

DRUGS (3)
  1. PEG-INTRON [Suspect]
     Indication: HEPATITIS C
  2. REBETOL [Suspect]
     Indication: HEPATITIS C
     Dosage: PO
     Route: 048
  3. INVESTIGATIONAL DRUG [Suspect]
     Indication: HEPATITIS C

REACTIONS (3)
  - ABDOMINAL PAIN [None]
  - APPENDICECTOMY [None]
  - VOMITING [None]
